FAERS Safety Report 14364711 (Version 1)
Quarter: 2018Q1

REPORT INFORMATION
  Report Type: Spontaneous
  Country: US (occurrence: US)
  Receive Date: 20180108
  Receipt Date: 20180108
  Transmission Date: 20180509
  Serious: Yes (Hospitalization)
  Sender: FDA-Public Use
  Company Number: US-SA-2018SA002783

PATIENT
  Age: 60 Year
  Sex: Female

DRUGS (1)
  1. UNISOM SLEEPMINIS NIGHTTIME SLEEP-AID [Suspect]
     Active Substance: DIPHENHYDRAMINE HYDROCHLORIDE
     Route: 048
     Dates: start: 20171226

REACTIONS (5)
  - Paralysis [Recovering/Resolving]
  - Paraesthesia [None]
  - Somnolence [Unknown]
  - Balance disorder [Not Recovered/Not Resolved]
  - Myalgia [Not Recovered/Not Resolved]

NARRATIVE: CASE EVENT DATE: 20171226
